FAERS Safety Report 7365716-6 (Version None)
Quarter: 2011Q1

REPORT INFORMATION
  Report Type: 
  Country: None (occurrence: None)
  Receive Date: 20110322
  Receipt Date: 20110316
  Transmission Date: 20110831
  Serious: No
  Sender: FDA-Public Use
  Company Number: US-PFIZER INC-2011058759

PATIENT
  Sex: Female
  Weight: 127 kg

DRUGS (6)
  1. PRISTIQ [Suspect]
     Indication: DECREASED INTEREST
     Dosage: 50 MG DAILY
     Route: 048
     Dates: start: 20100101, end: 20110301
  2. TOPAMAX [Concomitant]
     Indication: HEADACHE
     Dosage: 100 MG, 2X/DAY
     Route: 048
  3. PERCOCET [Concomitant]
     Indication: BACK PAIN
     Dosage: 325 MG, 4X/DAY
  4. VERAPAMIL [Concomitant]
     Indication: HEADACHE
     Dosage: 120 MG, 2X/DAY
     Route: 048
  5. PRISTIQ [Suspect]
     Indication: DEPRESSION
     Dosage: 100 MG, 1X/DAY
     Route: 048
     Dates: start: 20110301
  6. PRISTIQ [Suspect]
     Indication: CRYING

REACTIONS (1)
  - OEDEMA PERIPHERAL [None]
